FAERS Safety Report 15608063 (Version 1)
Quarter: 2018Q4

REPORT INFORMATION
  Report Type: Spontaneous
  Country: GB (occurrence: GB)
  Receive Date: 20181112
  Receipt Date: 20181112
  Transmission Date: 20190205
  Serious: Yes (Hospitalization)
  Sender: FDA-Public Use
  Company Number: GB-TEVA-2018-GB-973895

PATIENT
  Age: 60 Year
  Sex: Male

DRUGS (13)
  1. LANSOPRAZOLE. [Concomitant]
     Active Substance: LANSOPRAZOLE
  2. INSULIN HUMAN [Concomitant]
     Active Substance: INSULIN HUMAN
  3. ACETYLSALICYLIC ACID [Concomitant]
     Active Substance: ASPIRIN
  4. BUMETANIDE. [Suspect]
     Active Substance: BUMETANIDE
     Dosage: 5 MILLIGRAM DAILY; 3MG IN THE MORNING AND 2MG LUNCH
     Route: 048
  5. PARACETAMOL [Concomitant]
     Active Substance: ACETAMINOPHEN
  6. LEVOTHYROXINE. [Concomitant]
     Active Substance: LEVOTHYROXINE
  7. BISOPROLOL [Concomitant]
     Active Substance: BISOPROLOL
  8. PREGABALIN. [Concomitant]
     Active Substance: PREGABALIN
  9. ELANTAN [Concomitant]
     Active Substance: ISOSORBIDE MONONITRATE
  10. TRAMADOL. [Concomitant]
     Active Substance: TRAMADOL
  11. SIMVASTATIN. [Concomitant]
     Active Substance: SIMVASTATIN
  12. TILDIEM LA [Concomitant]
     Active Substance: DILTIAZEM HYDROCHLORIDE
  13. DOXAZOSIN MESYLATE. [Suspect]
     Active Substance: DOXAZOSIN MESYLATE
     Dosage: 2 MILLIGRAM DAILY;
     Route: 048

REACTIONS (4)
  - Dizziness [Unknown]
  - Orthostatic hypotension [Recovering/Resolving]
  - Feeling cold [Unknown]
  - Cold sweat [Unknown]

NARRATIVE: CASE EVENT DATE: 20181009
